FAERS Safety Report 19295105 (Version 2)
Quarter: 2021Q2

REPORT INFORMATION
  Report Type: Spontaneous
  Country: JP (occurrence: JP)
  Receive Date: 20210524
  Receipt Date: 20210628
  Transmission Date: 20210717
  Serious: Yes (Hospitalization, Other)
  Sender: FDA-Public Use
  Company Number: JP-TEVA-2021-JP-002478J

PATIENT
  Age: 94 Year
  Sex: Female

DRUGS (10)
  1. TRICHLORMETHIAZIDE TABLET 2MG ^TAIYO^ [Suspect]
     Active Substance: TRICHLORMETHIAZIDE
     Indication: PRODUCT USED FOR UNKNOWN INDICATION
     Dosage: 2 MILLIGRAM DAILY;
     Route: 048
  2. FUROSEMIDE TABLET 20MG ^TAKEDA TEVA^ [Suspect]
     Active Substance: FUROSEMIDE
     Indication: PRODUCT USED FOR UNKNOWN INDICATION
     Dosage: 20 MILLIGRAM DAILY;
     Route: 048
  3. UBIDECARENONE. [Suspect]
     Active Substance: UBIDECARENONE
     Dosage: 30 MILLIGRAM DAILY;
     Route: 048
  4. LANSOPRAZOLE OD TABLET 15MG ^TAKEDA TEVA^ [Suspect]
     Active Substance: LANSOPRAZOLE
     Indication: CHRONIC GASTRITIS
     Dosage: 15 MILLIGRAM DAILY;
     Route: 048
  5. VERAPAMIL HCL [Suspect]
     Active Substance: VERAPAMIL HYDROCHLORIDE
     Indication: PRODUCT USED FOR UNKNOWN INDICATION
     Dosage: 120 MILLIGRAM DAILY;
     Route: 048
  6. UBRETID [Suspect]
     Active Substance: DISTIGMINE BROMIDE
     Dosage: 5 MILLIGRAM DAILY;
     Route: 048
  7. MIYA?BM [Suspect]
     Active Substance: CLOSTRIDIUM BUTYRICUM SPORES STRAIN M-55
     Route: 048
  8. EBRANTIL [Suspect]
     Active Substance: URAPIDIL
     Dosage: 30 MILLIGRAM DAILY;
     Route: 048
  9. XARELTO [Suspect]
     Active Substance: RIVAROXABAN
     Dosage: 10 MILLIGRAM DAILY;
     Route: 048
  10. PIMURO [SENNA ALEXANDRINA] [Suspect]
     Active Substance: SENNA LEAF
     Dosage: .5 GRAM DAILY;
     Route: 048

REACTIONS (1)
  - Pneumatosis intestinalis [Recovered/Resolved]

NARRATIVE: CASE EVENT DATE: 20210514
